FAERS Safety Report 7118312-X (Version None)
Quarter: 2010Q4

REPORT INFORMATION
  Report Type: 
  Country: None (occurrence: None)
  Receive Date: 20101123
  Receipt Date: 20101117
  Transmission Date: 20110411
  Serious: Yes (Death, Other)
  Sender: FDA-Public Use
  Company Number: JP-BAYER-200912311BYL

PATIENT
  Age: 66 Year
  Sex: Female
  Weight: 51 kg

DRUGS (9)
  1. NEXAVAR [Suspect]
     Indication: HEPATIC NEOPLASM MALIGNANT
     Dosage: TOTAL DAILY DOSE: 800 MG  UNIT DOSE: 200 MG
     Route: 048
     Dates: start: 20090701, end: 20090707
  2. NEXAVAR [Suspect]
     Dosage: UNIT DOSE: 200 MG
     Route: 048
     Dates: start: 20090728, end: 20090805
  3. NEXAVAR [Suspect]
     Dosage: UNIT DOSE: 200 MG
     Route: 048
     Dates: start: 20090811, end: 20090827
  4. UREPEARL [Concomitant]
     Indication: PRURITUS GENERALISED
     Route: 061
     Dates: start: 20090703
  5. LASIX [Concomitant]
     Dosage: UNIT DOSE: 40 MG
     Route: 048
  6. MORIHEPAMIN [Concomitant]
     Route: 042
     Dates: start: 20090707
  7. PORTOLAC [Concomitant]
     Route: 048
     Dates: start: 20090710
  8. NAIXAN [Concomitant]
     Route: 048
     Dates: start: 20090710
  9. ALDACTONE [Concomitant]
     Dosage: UNIT DOSE: 25 MG
     Route: 048

REACTIONS (10)
  - DIARRHOEA [None]
  - DIZZINESS [None]
  - GASTRIC ULCER [None]
  - HEPATIC FUNCTION ABNORMAL [None]
  - HEPATIC NEOPLASM MALIGNANT [None]
  - MALIGNANT NEOPLASM PROGRESSION [None]
  - PALMAR-PLANTAR ERYTHRODYSAESTHESIA SYNDROME [None]
  - PYREXIA [None]
  - RASH [None]
  - URTICARIA CHRONIC [None]
